FAERS Safety Report 4920032-4 (Version None)
Quarter: 2006Q1

REPORT INFORMATION
  Report Type: 
  Country: None (occurrence: None)
  Receive Date: 20060217
  Receipt Date: 20060208
  Transmission Date: 20060701
  Serious: Yes (Hospitalization)
  Sender: FDA-Public Use
  Company Number: 2005BI020436

PATIENT
  Age: 34 Year
  Sex: Male
  Weight: 177.81 kg

DRUGS (1)
  1. AVONEX [Suspect]
     Indication: MULTIPLE SCLEROSIS
     Dosage: 30 UG; QW; IM
     Route: 030
     Dates: start: 20031027

REACTIONS (8)
  - ARTHROPOD BITE [None]
  - CHILLS [None]
  - CYST [None]
  - FATIGUE [None]
  - LOCALISED INFECTION [None]
  - PAIN IN EXTREMITY [None]
  - PROCEDURAL PAIN [None]
  - SKIN ULCER [None]
